FAERS Safety Report 19909277 (Version 1)
Quarter: 2021Q4

REPORT INFORMATION
  Report Type: Spontaneous
  Country: US (occurrence: US)
  Receive Date: 20211001
  Receipt Date: 20211001
  Transmission Date: 20220303
  Serious: No
  Sender: FDA-Public Use
  Company Number: US-AMARIN PHARMA, INC.-2021AMR000125

PATIENT
  Age: 71 Year
  Sex: Female
  Weight: 67.19 kg

DRUGS (14)
  1. VASCEPA [Suspect]
     Active Substance: ICOSAPENT ETHYL
     Indication: Blood triglycerides increased
     Route: 048
     Dates: start: 2019
  2. VASCEPA [Suspect]
     Active Substance: ICOSAPENT ETHYL
     Indication: Cardiovascular event prophylaxis
     Route: 048
  3. VASCEPA [Suspect]
     Active Substance: ICOSAPENT ETHYL
     Route: 048
  4. TRULICITY [Suspect]
     Active Substance: DULAGLUTIDE
     Indication: Product used for unknown indication
  5. PLAVIX [Concomitant]
     Active Substance: CLOPIDOGREL BISULFATE
     Indication: Anticoagulant therapy
     Route: 048
     Dates: start: 2009
  6. LIVALO [Concomitant]
     Active Substance: PITAVASTATIN CALCIUM
     Indication: Blood cholesterol increased
     Route: 048
     Dates: start: 2016
  7. AMLODIPINE [Concomitant]
     Active Substance: AMLODIPINE BESYLATE
     Indication: Hypertension
     Route: 048
     Dates: start: 2009
  8. VALSARTAN [Concomitant]
     Active Substance: VALSARTAN
     Indication: Hypertension
     Route: 048
     Dates: start: 2009
  9. PEPCID [Concomitant]
     Active Substance: FAMOTIDINE
     Indication: Gastrooesophageal reflux disease
     Route: 048
  10. Vitamin D3 and K2 complex [Concomitant]
     Indication: Vitamin D deficiency
     Route: 048
     Dates: start: 2016
  11. PROBIOTICS NOS [Concomitant]
     Active Substance: PROBIOTICS NOS
     Indication: Probiotic therapy
     Route: 048
     Dates: start: 2007
  12. Magnesium/Zinc/Chromium plus other products [Concomitant]
     Indication: Prophylaxis
     Route: 048
     Dates: start: 202102
  13. Magnesium/Zinc/Chromium plus other products [Concomitant]
     Indication: Supplementation therapy
  14. Magnesium/Zinc/Chromium plus other products [Concomitant]
     Indication: Insulin resistance

REACTIONS (6)
  - Blood glucose increased [Unknown]
  - Muscle spasms [Unknown]
  - Malaise [Unknown]
  - Arthralgia [Unknown]
  - Myalgia [Unknown]
  - Underdose [Unknown]
